FAERS Safety Report 15742631 (Version 4)
Quarter: 2019Q4

REPORT INFORMATION
  Report Type: Spontaneous
  Country: CZ (occurrence: CZ)
  Receive Date: 20181219
  Receipt Date: 20191004
  Transmission Date: 20200122
  Serious: Yes (Life-Threatening, Hospitalization, Other)
  Sender: FDA-Public Use
  Company Number: CZ-BAXTER-2018BAX030140

PATIENT
  Age: 68 Year
  Sex: Male

DRUGS (6)
  1. SUFENTA [Suspect]
     Active Substance: SUFENTANIL CITRATE
     Indication: ARTHROSCOPY
     Route: 042
     Dates: start: 20181127, end: 20181127
  2. NOVALGIN (METAMIZOLE SODIUM) [Suspect]
     Active Substance: METAMIZOLE SODIUM
     Route: 042
     Dates: start: 20181127, end: 20181127
  3. NOVALGIN (METAMIZOLE SODIUM) [Suspect]
     Active Substance: METAMIZOLE SODIUM
     Indication: ARTHROSCOPY
     Route: 042
     Dates: start: 20181127, end: 20181127
  4. SEVORANE [Suspect]
     Active Substance: SEVOFLURANE
     Indication: ARTHROSCOPY
     Route: 055
     Dates: start: 20181127, end: 20181127
  5. PROPOFOL MCT/LCT FRESENIUS [Suspect]
     Active Substance: PROPOFOL
     Indication: ARTHROSCOPY
     Route: 042
     Dates: start: 20181127, end: 20181127
  6. FYZIOLOGICKY ROZTOK VIAFLO [Suspect]
     Active Substance: SODIUM CHLORIDE
     Indication: ARTHROSCOPY
     Dosage: 250ML
     Route: 042
     Dates: start: 20181127, end: 20181127

REACTIONS (13)
  - Dysarthria [Recovering/Resolving]
  - Oxygen saturation decreased [Recovering/Resolving]
  - Hepatorenal failure [Recovering/Resolving]
  - Device issue [Unknown]
  - Nausea [Recovering/Resolving]
  - Suspected product quality issue [Unknown]
  - Hypotension [Recovering/Resolving]
  - Confusional state [Recovering/Resolving]
  - Septic shock [Recovering/Resolving]
  - Diarrhoea [Recovering/Resolving]
  - Suspected product contamination [Unknown]
  - Speech disorder [Recovering/Resolving]
  - Tachycardia [Recovering/Resolving]

NARRATIVE: CASE EVENT DATE: 20181128
